FAERS Safety Report 5892151-X (Version None)
Quarter: 2008Q3

REPORT INFORMATION
  Report Type: 
  Country: None (occurrence: None)
  Receive Date: 20080918
  Receipt Date: 20080908
  Transmission Date: 20090109
  Serious: Yes (Other)
  Sender: FDA-Public Use
  Company Number: 20155

PATIENT
  Age: 42 Year
  Sex: Female

DRUGS (1)
  1. METHOTREXATE [Suspect]
     Indication: GESTATIONAL TROPHOBLASTIC TUMOUR
     Dosage: 0.4 MG/KG DAILY IM
     Route: 030
     Dates: start: 20070311

REACTIONS (4)
  - BACK PAIN [None]
  - PLEURAL EFFUSION [None]
  - PLEURISY [None]
  - PNEUMONITIS [None]
